FAERS Safety Report 12883827 (Version 1)
Quarter: 2016Q4

REPORT INFORMATION
  Report Type: Spontaneous
  Country: CH (occurrence: CH)
  Receive Date: 20161026
  Receipt Date: 20161026
  Transmission Date: 20170207
  Serious: Yes (Hospitalization)
  Sender: FDA-Public Use
  Company Number: CH-009507513-1610CHE008995

PATIENT
  Age: 73 Year
  Sex: Female

DRUGS (8)
  1. REMERON [Suspect]
     Active Substance: MIRTAZAPINE
     Dosage: 15 MG, QD
     Route: 048
     Dates: start: 20160210, end: 20160219
  2. VENLAFAXINE HYDROCHLORIDE. [Suspect]
     Active Substance: VENLAFAXINE HYDROCHLORIDE
     Dosage: 75 MG, QD
     Route: 048
     Dates: start: 20160311, end: 20160324
  3. QUILONORM (LITHIUM ACETATE) [Concomitant]
     Dosage: 450 MG, QD
     Route: 048
     Dates: start: 2004
  4. ZYPREXA [Concomitant]
     Active Substance: OLANZAPINE
     Dosage: 5 MG, QD
     Route: 048
     Dates: start: 20160225
  5. VENLAFAXINE HYDROCHLORIDE. [Suspect]
     Active Substance: VENLAFAXINE HYDROCHLORIDE
     Dosage: 37.5 MG, QD
     Route: 048
     Dates: start: 20160303, end: 20160311
  6. ZOLDORM [Suspect]
     Active Substance: ZOLPIDEM TARTRATE
     Dosage: 10 MG, QD
     Route: 048
     Dates: start: 20160107
  7. FOLIC ACID. [Concomitant]
     Active Substance: FOLIC ACID
  8. REMERON [Suspect]
     Active Substance: MIRTAZAPINE
     Dosage: 30 MG, QD
     Route: 048
     Dates: start: 20160220

REACTIONS (3)
  - Abnormal behaviour [Recovered/Resolved]
  - Mania [Recovered/Resolved]
  - Logorrhoea [Recovered/Resolved]

NARRATIVE: CASE EVENT DATE: 20160323
